FAERS Safety Report 7354380-8 (Version None)
Quarter: 2011Q1

REPORT INFORMATION
  Report Type: 
  Country: None (occurrence: None)
  Receive Date: 20110316
  Receipt Date: 20110309
  Transmission Date: 20110831
  Serious: Yes (Hospitalization, Other)
  Sender: FDA-Public Use
  Company Number: US-JNJFOC-20100805174

PATIENT
  Sex: Female

DRUGS (6)
  1. PREDNISONE [Suspect]
  2. LEVAQUIN [Suspect]
     Indication: BRONCHITIS
     Route: 048
  3. LEVAQUIN [Suspect]
     Indication: PNEUMONIA
     Route: 048
  4. LEVAQUIN [Suspect]
     Route: 048
  5. PREDNISONE [Suspect]
     Indication: INFLAMMATION
  6. LEVAQUIN [Suspect]
     Route: 048

REACTIONS (2)
  - TENOSYNOVITIS [None]
  - TENDON RUPTURE [None]
